FAERS Safety Report 24976913 (Version 3)
Quarter: 2025Q1

REPORT INFORMATION
  Report Type: Spontaneous
  Country: JP (occurrence: JP)
  Receive Date: 20250217
  Receipt Date: 20250304
  Transmission Date: 20250408
  Serious: Yes (Other)
  Sender: PFIZER
  Company Number: JP-PFIZER INC-202500034846

PATIENT
  Age: 75 Year
  Sex: Female

DRUGS (1)
  1. BESPONSA [Suspect]
     Active Substance: INOTUZUMAB OZOGAMICIN
     Indication: Acute lymphocytic leukaemia
     Dates: start: 2018

REACTIONS (3)
  - Portal hypertension [Unknown]
  - Venoocclusive liver disease [Unknown]
  - Varicose vein [Recovering/Resolving]

NARRATIVE: CASE EVENT DATE: 20250214
